FAERS Safety Report 19179378 (Version 11)
Quarter: 2022Q3

REPORT INFORMATION
  Report Type: Report from Study
  Country: US (occurrence: US)
  Receive Date: 20210426
  Receipt Date: 20220830
  Transmission Date: 20221026
  Serious: Yes (Death, Hospitalization, Other)
  Sender: FDA-Public Use
  Company Number: US-GLAXOSMITHKLINE-US2021GSK058310

PATIENT

DRUGS (16)
  1. DOSTARLIMAB [Suspect]
     Active Substance: DOSTARLIMAB
     Indication: Endometrial cancer recurrent
     Dosage: 500 MG
     Route: 042
     Dates: start: 20201015, end: 20201015
  2. DOSTARLIMAB [Suspect]
     Active Substance: DOSTARLIMAB
     Dosage: 1000 MG
     Route: 042
     Dates: start: 20210218, end: 20210218
  3. CARBOPLATIN [Suspect]
     Active Substance: CARBOPLATIN
     Indication: Endometrial cancer
     Dosage: 5 AUC
     Route: 042
     Dates: start: 20201015, end: 20201015
  4. CARBOPLATIN [Suspect]
     Active Substance: CARBOPLATIN
     Dosage: 382 AUC
     Route: 042
     Dates: start: 20210128, end: 20210128
  5. PACLITAXEL [Suspect]
     Active Substance: PACLITAXEL
     Indication: Endometrial cancer
     Dosage: 175 MG/M2
     Route: 042
     Dates: start: 20201015, end: 20201015
  6. PACLITAXEL [Suspect]
     Active Substance: PACLITAXEL
     Dosage: 175 MG/M2
     Route: 042
     Dates: start: 20210128, end: 20210128
  7. VANCOMYCIN [Concomitant]
     Active Substance: VANCOMYCIN
     Indication: Hypovolaemic shock
     Dosage: 1250 MG, ONCE
     Route: 042
     Dates: start: 20210304, end: 20210304
  8. VANCOMYCIN [Concomitant]
     Active Substance: VANCOMYCIN
     Indication: Infection
     Dosage: UNK
     Route: 042
     Dates: start: 20210331, end: 20210407
  9. MAXIPIME (CEFEPIME) [Concomitant]
     Indication: Hypovolaemic shock
     Dosage: 1000 MG, ONCE
     Route: 042
     Dates: start: 20210304, end: 20210304
  10. MAXIPIME (CEFEPIME) [Concomitant]
     Indication: Infection
     Dosage: UNK
     Route: 042
     Dates: start: 20210331, end: 20210407
  11. METHYLPREDNISOLONE [Concomitant]
     Active Substance: METHYLPREDNISOLONE
     Indication: Immune system disorder
     Dosage: 1 MG/KG
     Dates: start: 20210331
  12. ELIQUIS [Concomitant]
     Active Substance: APIXABAN
     Indication: Deep vein thrombosis
     Dosage: 10 MG, BID
     Route: 048
     Dates: start: 20210216, end: 20210222
  13. ELIQUIS [Concomitant]
     Active Substance: APIXABAN
     Dosage: 5 MG, BID
     Route: 048
     Dates: start: 20210223
  14. NYSTATIN [Concomitant]
     Active Substance: NYSTATIN
     Indication: Oral candidiasis
     Dosage: 500000 IU, QID
     Route: 048
     Dates: start: 20210304, end: 20210307
  15. LACTATED RINGERS SOLUTION [Concomitant]
     Active Substance: CALCIUM CHLORIDE\POTASSIUM CHLORIDE\SODIUM CHLORIDE\SODIUM LACTATE
     Indication: Acute kidney injury
     Dosage: 1000 ML, ONCE
     Route: 042
     Dates: start: 20210304, end: 20210304
  16. SODIUM CHLORIDE [Concomitant]
     Active Substance: SODIUM CHLORIDE
     Indication: Acute kidney injury
     Dosage: 1000 ML, PRN
     Route: 042
     Dates: start: 20210304, end: 20210305

REACTIONS (4)
  - Sudden death [Fatal]
  - Hypovolaemic shock [Fatal]
  - Sepsis [Recovered/Resolved with Sequelae]
  - Syncope [Recovered/Resolved]

NARRATIVE: CASE EVENT DATE: 20210304
